FAERS Safety Report 16783501 (Version 1)
Quarter: 2019Q3

REPORT INFORMATION
  Report Type: Spontaneous
  Country: GB (occurrence: GB)
  Receive Date: 20190907
  Receipt Date: 20190907
  Transmission Date: 20191005
  Serious: Yes (Hospitalization)
  Sender: FDA-Public Use
  Company Number: GB-TEVA-2019-GB-1102574

PATIENT
  Age: 70 Year
  Sex: Male

DRUGS (9)
  1. WARFARIN [Concomitant]
     Active Substance: WARFARIN
     Dosage: 1MG PER DAY
     Route: 048
  2. SALBUTAMOL [Concomitant]
     Active Substance: ALBUTEROL
     Dosage: 1-2 PUFFS FOUR TIMES PER DAY. 100 MICROGRAMS/DOSE INHALER
     Route: 055
  3. CARBOCISTEINE [Concomitant]
     Active Substance: CARBOCYSTEINE
     Dosage: 1500MG PER DAY
     Route: 048
  4. AMIODARONE [Suspect]
     Active Substance: AMIODARONE
     Dosage: 100MG PER DAY
     Route: 048
     Dates: end: 20190508
  5. SALMETEROL AND FLUTICASONE [Concomitant]
     Active Substance: FLUTICASONE PROPIONATE\SALMETEROL XINAFOATE
     Dosage: FLUTICASONE PROPIONATE 500MICROGRAMS/DOSE / SALMETEROL 50MICROGRAMS/DOSE, 2 DOSAGE FORMS
     Route: 055
  6. BUMETANIDE. [Concomitant]
     Active Substance: BUMETANIDE
     Dosage: 6 MG PER DAY
     Route: 048
  7. TERBUTALINE [Concomitant]
     Active Substance: TERBUTALINE
     Dosage: NEBULE 4 DOSAGE FORMS
     Route: 055
  8. IPRATROPIUM BROMIDE. [Concomitant]
     Active Substance: IPRATROPIUM BROMIDE
     Dosage: 1 NEBULE 3-4 TIMES A DAY. 250MICROGRAMS/1ML NEBULISER LIQUID UNIT DOSE VIALS, 1DOSAGE FORMS
     Route: 050
  9. ATORVASTATIN [Concomitant]
     Active Substance: ATORVASTATIN
     Dosage: 20 MG PER DAY
     Route: 048

REACTIONS (3)
  - Hyperthyroidism [Recovered/Resolved]
  - Tachycardia [Recovered/Resolved]
  - Dyspnoea [Unknown]

NARRATIVE: CASE EVENT DATE: 20190730
